FAERS Safety Report 4606077-2 (Version None)
Quarter: 2005Q1

REPORT INFORMATION
  Report Type: 
  Country: None (occurrence: None)
  Receive Date: 20050311
  Receipt Date: 20050302
  Transmission Date: 20050727
  Serious: Yes (Hospitalization)
  Sender: FDA-Public Use
  Company Number: PHNU2005DE01152

PATIENT
  Age: 68 Year
  Sex: Female

DRUGS (3)
  1. TAVOR [Concomitant]
     Dosage: 6 MG/DAY
     Route: 048
     Dates: start: 20020110, end: 20020125
  2. BELOC ZOK [Concomitant]
     Dosage: 47.5 MG, QD
     Route: 048
     Dates: start: 20020125, end: 20020213
  3. CLOZARIL [Suspect]
     Indication: SCHIZOPHRENIA
     Dosage: UP TO 150 MG/DAY
     Route: 048
     Dates: start: 20020115, end: 20020213

REACTIONS (6)
  - CHOLECYSTECTOMY [None]
  - CHOLECYSTITIS [None]
  - CHOLELITHIASIS [None]
  - EOSINOPHILIA [None]
  - HEPATIC ENZYME INCREASED [None]
  - PYREXIA [None]
